FAERS Safety Report 6589356 (Version 2)
Quarter: 2020Q3

REPORT INFORMATION
  Report Type: Report from Study
  Country: DE (occurrence: DE)
  Receive Date: 20080320
  Receipt Date: 20100519
  Transmission Date: 20201104
  Serious: Yes (Hospitalization)
  Sender: FDA-Public Use
  Company Number: DE-ROCHE-553311

PATIENT
  Age: 38 Year
  Sex: Male
  Weight: 70 kg

DRUGS (5)
  1. PACLITAXEL. [Suspect]
     Active Substance: PACLITAXEL
     Dosage: FREQUENCY REPORTED AS Q7D.
     Route: 042
     Dates: start: 20070821, end: 20071227
  2. LEVOFLOXACIN. [Concomitant]
     Active Substance: LEVOFLOXACIN
     Dosage: DRUG NAME REPORTED AS ANTIBIOSIS LEVOFLOXACIN
     Dates: start: 20080118
  3. BEVACIZUMAB. [Suspect]
     Active Substance: BEVACIZUMAB
     Dosage: FREQUENCY REPORTED AS Q14D . AS PER PROTOCOL FREQUENCY: 10 MG/KG Q2W, OR 15 MG/KG Q3W. DOSAGE REGIM+
     Route: 042
     Dates: start: 20070821, end: 20080207
  4. BEVACIZUMAB. [Suspect]
     Active Substance: BEVACIZUMAB
     Route: 042
     Dates: start: 20080319
  5. IBANDRONIC ACID. [Suspect]
     Active Substance: IBANDRONIC ACID
     Indication: PRODUCT USED FOR UNKNOWN INDICATION
     Route: 065

REACTIONS (2)
  - Complication associated with device [Recovered/Resolved]
  - Device related infection [Recovered/Resolved]

NARRATIVE: CASE EVENT DATE: 20080301
